FAERS Safety Report 6379509-X (Version None)
Quarter: 2009Q3

REPORT INFORMATION
  Report Type: 
  Country: None (occurrence: None)
  Receive Date: 20090928
  Receipt Date: 20090925
  Transmission Date: 20100115
  Serious: Yes (Life-Threatening, Hospitalization, Other)
  Sender: FDA-Public Use
  Company Number: JP-EISAI INC.-E2020-04919-SPO-JP

PATIENT
  Age: 89 Year
  Sex: Female

DRUGS (12)
  1. ARICEPT [Suspect]
     Indication: DEMENTIA ALZHEIMER'S TYPE
     Route: 048
     Dates: start: 20060101, end: 20090630
  2. AMLODIPINE [Concomitant]
     Route: 048
  3. OLMETEC [Concomitant]
     Route: 048
  4. ASPIRIN [Concomitant]
     Route: 048
  5. RISPERDAL [Concomitant]
     Route: 048
     Dates: end: 20090630
  6. EBRANTIL [Concomitant]
     Route: 048
  7. CINAL [Concomitant]
     Route: 048
     Dates: end: 20090630
  8. JUVELA NICOTINATE [Concomitant]
     Route: 048
     Dates: end: 20090630
  9. FAMOTIDINE [Concomitant]
     Route: 048
  10. ALOSENN [Concomitant]
     Route: 048
  11. UBRETID [Concomitant]
  12. PANTOTHENATE [Concomitant]

REACTIONS (3)
  - SICK SINUS SYNDROME [None]
  - SINUS BRADYCARDIA [None]
  - SYNCOPE [None]
